FAERS Safety Report 13543967 (Version 2)
Quarter: 2017Q2

REPORT INFORMATION
  Report Type: Spontaneous
  Country: IT (occurrence: IT)
  Receive Date: 20170515
  Receipt Date: 20170518
  Transmission Date: 20170830
  Serious: Yes (Death)
  Sender: FDA-Public Use
  Company Number: IT-ROCHE-1934277

PATIENT
  Age: 75 Year
  Sex: Female

DRUGS (7)
  1. LASIX [Concomitant]
     Active Substance: FUROSEMIDE
     Indication: HYPERTENSION
     Dosage: 25 MG TABLETS^ 30 TABLETS
     Route: 048
     Dates: start: 20170123, end: 20170422
  2. DILZENE [Suspect]
     Active Substance: DILTIAZEM HYDROCHLORIDE
     Indication: ATRIAL FIBRILLATION
     Dosage: 60 MG MODIFIED-RELEASE TABLETS^ 50 TABLETS
     Route: 048
     Dates: start: 20170121, end: 20170422
  3. XANAX [Concomitant]
     Active Substance: ALPRAZOLAM
     Indication: ANXIETY
     Dosage: 0.25 MG TABLETS^ 20 TABLETS
     Route: 048
     Dates: start: 20170123, end: 20170422
  4. LOPRESSOR [Concomitant]
     Active Substance: METOPROLOL TARTRATE
     Indication: HYPERTENSION
     Dosage: 100 MG FILM-COATED TABLETS^ 30 TABLETS
     Route: 048
     Dates: start: 20170123, end: 20170422
  5. KCL-RETARD [Concomitant]
     Active Substance: POTASSIUM CHLORIDE
     Indication: HYPERTENSION
     Dosage: 600 MG PROLONGED-RELEASE TABLETS^ 40 TABLETS
     Route: 048
     Dates: start: 20170123, end: 20170422
  6. COUMADIN [Concomitant]
     Active Substance: WARFARIN SODIUM
     Indication: ATRIAL FIBRILLATION
     Dosage: 5 MG 30 SCORED TABLETS THERAPY DURATION: 1 YEAR
     Route: 048
  7. DIAZEPAM. [Suspect]
     Active Substance: DIAZEPAM
     Indication: ANXIETY
     Route: 048
     Dates: start: 20170421, end: 20170422

REACTIONS (2)
  - Drug use disorder [Fatal]
  - Respiratory arrest [Fatal]

NARRATIVE: CASE EVENT DATE: 20170422
